FAERS Safety Report 15576040 (Version 1)
Quarter: 2018Q4

REPORT INFORMATION
  Report Type: Spontaneous
  Country: NL (occurrence: NL)
  Receive Date: 20181101
  Receipt Date: 20181101
  Transmission Date: 20190205
  Serious: Yes (Hospitalization, Other)
  Sender: FDA-Public Use
  Company Number: NL-OTSUKA-2018_034926

PATIENT
  Age: 47 Year
  Sex: Male
  Weight: 70 kg

DRUGS (1)
  1. ARIPIPRAZOLE. [Suspect]
     Active Substance: ARIPIPRAZOLE
     Indication: SCHIZOPHRENIA
     Dosage: 15 MG PER DAY
     Route: 065
     Dates: start: 20160901, end: 20180907

REACTIONS (2)
  - Excessive sexual fantasies [Recovered/Resolved]
  - Gambling disorder [Recovered/Resolved]

NARRATIVE: CASE EVENT DATE: 201702
